FAERS Safety Report 16923513 (Version 1)
Quarter: 2019Q4

REPORT INFORMATION
  Report Type: Spontaneous
  Country: CN (occurrence: CN)
  Receive Date: 20191016
  Receipt Date: 20191016
  Transmission Date: 20200122
  Serious: Yes (Life-Threatening, Hospitalization, Other)
  Sender: FDA-Public Use
  Company Number: CN-ACCORD-156803

PATIENT
  Age: 30 Year
  Sex: Female

DRUGS (2)
  1. MIFEPRISTONE [Suspect]
     Active Substance: MIFEPRISTONE
     Indication: PLACENTA ACCRETA
     Dosage: 150 MG, P.O.
     Route: 048
     Dates: start: 201804
  2. METHOTREXATE. [Suspect]
     Active Substance: METHOTREXATE
     Indication: PLACENTA ACCRETA
     Dosage: THREE DOSES 4, 6 AND 8 APRIL 2018
     Route: 030
     Dates: start: 20180404

REACTIONS (7)
  - Hepatotoxicity [Recovered/Resolved]
  - Liver injury [Recovered/Resolved]
  - Deafness [Recovered/Resolved]
  - Stomatitis [Recovered/Resolved]
  - Vomiting [Recovered/Resolved]
  - Bone marrow failure [Recovered/Resolved]
  - Nausea [Recovered/Resolved]

NARRATIVE: CASE EVENT DATE: 201804
